FAERS Safety Report 13214172 (Version 1)
Quarter: 2017Q1

REPORT INFORMATION
  Report Type: Report from Study
  Country: US (occurrence: US)
  Receive Date: 20170210
  Receipt Date: 20170210
  Transmission Date: 20170428
  Serious: Yes (Hospitalization, Other)
  Sender: FDA-Public Use
  Company Number: US-ALEXION-A201701213

PATIENT
  Sex: Female

DRUGS (1)
  1. SOLIRIS [Suspect]
     Active Substance: ECULIZUMAB
     Indication: HAEMOLYTIC URAEMIC SYNDROME
     Dosage: UNK
     Route: 042

REACTIONS (6)
  - Loss of consciousness [Unknown]
  - Fluid retention [Unknown]
  - Infected fistula [Unknown]
  - Smear cervix abnormal [Unknown]
  - Weight increased [Unknown]
  - Haematoma [Unknown]

NARRATIVE: CASE EVENT DATE: 201701
